FAERS Safety Report 23972901 (Version 2)
Quarter: 2024Q3

REPORT INFORMATION
  Report Type: Report from Study
  Country: MX (occurrence: MX)
  Receive Date: 20240613
  Receipt Date: 20240711
  Transmission Date: 20241017
  Serious: Yes (Death, Hospitalization)
  Sender: NOVARTIS
  Company Number: MX-002147023-NVSC2024MX112624

PATIENT
  Age: 60 Year
  Sex: Female
  Weight: 92 kg

DRUGS (9)
  1. ELTROMBOPAG OLAMINE [Suspect]
     Active Substance: ELTROMBOPAG OLAMINE
     Indication: Platelet count decreased
     Dosage: 1 DOSAGE FORM, QD
     Route: 048
  2. ELTROMBOPAG OLAMINE [Suspect]
     Active Substance: ELTROMBOPAG OLAMINE
     Dosage: 0.5 DOSAGE FORM QD (50 MG/ HALF TABLET)
     Route: 048
     Dates: start: 20240510
  3. ELTROMBOPAG OLAMINE [Suspect]
     Active Substance: ELTROMBOPAG OLAMINE
     Dosage: 50 MG
     Route: 065
  4. PREDNISONE [Concomitant]
     Active Substance: PREDNISONE
     Indication: Platelet count decreased
     Dosage: 2 DOSAGE FORM (50 MG), QD
     Route: 048
     Dates: start: 20240509, end: 20240529
  5. PREDNISONE [Concomitant]
     Active Substance: PREDNISONE
     Dosage: 1 DOSAGE FORM (50 MG), QD
     Route: 048
     Dates: start: 20240530, end: 20240606
  6. PREDNISONE [Concomitant]
     Active Substance: PREDNISONE
     Dosage: HALF DF (JUNE 7 TO 12)
     Route: 065
  7. PREDNISONE [Concomitant]
     Active Substance: PREDNISONE
     Dosage: 5MG 2 TABLETS(JUNE 13 TO 17)
     Route: 065
  8. PREDNISONE [Concomitant]
     Active Substance: PREDNISONE
     Dosage: 1.5 MG (18TH UNTIL FURTHER)
     Route: 065
  9. PREDNISONE [Concomitant]
     Active Substance: PREDNISONE
     Dosage: HALF TABLET (50 MG), QD
     Route: 048
     Dates: start: 20240607

REACTIONS (7)
  - Death [Fatal]
  - Platelet count decreased [Recovered/Resolved]
  - Fatigue [Recovering/Resolving]
  - Malaise [Recovering/Resolving]
  - Contusion [Recovering/Resolving]
  - Anxiety [Not Recovered/Not Resolved]
  - Off label use [Unknown]

NARRATIVE: CASE EVENT DATE: 20240510
